FAERS Safety Report 7339906-2 (Version None)
Quarter: 2011Q1

REPORT INFORMATION
  Report Type: 
  Country: None (occurrence: None)
  Receive Date: 20110228
  Receipt Date: 20110211
  Transmission Date: 20110831
  Serious: Yes (Hospitalization)
  Sender: FDA-Public Use
  Company Number: 821044

PATIENT
  Age: 71 Year
  Sex: Male
  Weight: 78 kg

DRUGS (1)
  1. PHENYLEPHRINE HCL [Suspect]
     Dosage: 20 MG MILLIGRAM(S), INTRAVENOUS
     Route: 042
     Dates: start: 20101025, end: 20101025

REACTIONS (4)
  - COMA [None]
  - WRONG DRUG ADMINISTERED [None]
  - OXYGEN SATURATION DECREASED [None]
  - PRODUCT CONTAINER ISSUE [None]
